FAERS Safety Report 22210673 (Version 19)
Quarter: 2025Q2

REPORT INFORMATION
  Report Type: Report from Study
  Country: US (occurrence: US)
  Receive Date: 20230414
  Receipt Date: 20250611
  Transmission Date: 20250716
  Serious: Yes (Hospitalization, Other)
  Sender: TAKEDA
  Company Number: US-TAKEDA-2022TUS094158

PATIENT
  Age: 50 Year
  Sex: Female
  Weight: 98 kg

DRUGS (27)
  1. HUMAN IMMUNOGLOBULIN G [Suspect]
     Active Substance: HUMAN IMMUNOGLOBULIN G
     Indication: Immunodeficiency common variable
     Dosage: 24 GRAM, Q2WEEKS
  2. HUMAN IMMUNOGLOBULIN G [Suspect]
     Active Substance: HUMAN IMMUNOGLOBULIN G
     Dosage: 12 GRAM, 1/WEEK
  3. HUMAN IMMUNOGLOBULIN G [Suspect]
     Active Substance: HUMAN IMMUNOGLOBULIN G
     Dosage: 14 GRAM, 1/WEEK
  4. HUMAN IMMUNOGLOBULIN G [Suspect]
     Active Substance: HUMAN IMMUNOGLOBULIN G
     Dosage: 18 GRAM, 1/WEEK
  5. CUVITRU [Suspect]
     Active Substance: HUMAN IMMUNOGLOBULIN G
     Indication: Immunodeficiency common variable
  6. CUVITRU [Suspect]
     Active Substance: HUMAN IMMUNOGLOBULIN G
     Dosage: 18 GRAM, 1/WEEK
  7. BENADRYL [Suspect]
     Active Substance: DIPHENHYDRAMINE HYDROCHLORIDE
     Indication: Product used for unknown indication
  8. DIPHENHYDRAMINE [Concomitant]
     Active Substance: DIPHENHYDRAMINE
  9. ACETAMINOPHEN\HYDROCODONE [Concomitant]
     Active Substance: ACETAMINOPHEN\HYDROCODONE
  10. VITAMIN D3 [Concomitant]
     Active Substance: CHOLECALCIFEROL
  11. EPINEPHRINE [Concomitant]
     Active Substance: EPINEPHRINE
  12. STRATTERA [Concomitant]
     Active Substance: ATOMOXETINE HYDROCHLORIDE
  13. FLUOXETINE HYDROCHLORIDE [Concomitant]
     Active Substance: FLUOXETINE HYDROCHLORIDE
  14. ALBUTEROL SULFATE [Concomitant]
     Active Substance: ALBUTEROL SULFATE
  15. FLOVENT HFA [Concomitant]
     Active Substance: FLUTICASONE PROPIONATE
  16. Lmx [Concomitant]
  17. OXYBUTYNIN CHLORIDE [Concomitant]
     Active Substance: OXYBUTYNIN CHLORIDE
  18. DIPHENHYDRAMINE HYDROCHLORIDE [Concomitant]
     Active Substance: DIPHENHYDRAMINE HYDROCHLORIDE
  19. ACETAMINOPHEN [Concomitant]
     Active Substance: ACETAMINOPHEN
  20. IBUPROFEN [Concomitant]
     Active Substance: IBUPROFEN
  21. COD LIVER OIL [Concomitant]
     Active Substance: COD LIVER OIL
  22. MUCINEX [Concomitant]
     Active Substance: GUAIFENESIN
  23. BREO ELLIPTA [Concomitant]
     Active Substance: FLUTICASONE FUROATE\VILANTEROL TRIFENATATE
  24. BERBERINE [Concomitant]
     Active Substance: BERBERINE
  25. HUMIRA [Concomitant]
     Active Substance: ADALIMUMAB
  26. VANCOMYCIN HYDROCHLORIDE [Concomitant]
     Active Substance: VANCOMYCIN HYDROCHLORIDE
  27. OXYGEN [Concomitant]
     Active Substance: OXYGEN

REACTIONS (34)
  - Diverticulitis [Unknown]
  - Blood pressure abnormal [Unknown]
  - Clostridium difficile infection [Unknown]
  - Kidney infection [Unknown]
  - Injection site discharge [Unknown]
  - Nasopharyngitis [Unknown]
  - Gastrointestinal infection [Unknown]
  - Candida infection [Unknown]
  - Frequent bowel movements [Unknown]
  - Subcutaneous emphysema [Unknown]
  - Viral infection [Unknown]
  - Lipomatosis [Unknown]
  - Product supply issue [Unknown]
  - Carpal tunnel syndrome [Unknown]
  - Procedural pain [Unknown]
  - Administration site pain [Unknown]
  - Infection [Unknown]
  - Application site erythema [Unknown]
  - Infusion site discharge [Unknown]
  - Application site pruritus [Unknown]
  - Infusion site mass [Unknown]
  - Influenza [Unknown]
  - Infusion site oedema [Recovered/Resolved]
  - Somnolence [Unknown]
  - Body temperature increased [Unknown]
  - Infusion site discomfort [Unknown]
  - Infusion site erythema [Recovered/Resolved]
  - Muscle spasms [Unknown]
  - Infusion site swelling [Recovered/Resolved]
  - Arthralgia [Unknown]
  - Vomiting [Unknown]
  - Infusion site pain [Unknown]
  - Pruritus [Unknown]
  - Nausea [Unknown]

NARRATIVE: CASE EVENT DATE: 20231125
